FAERS Safety Report 8318041-0 (Version None)
Quarter: 2012Q2

REPORT INFORMATION
  Report Type: 
  Country: None (occurrence: None)
  Receive Date: 20120427
  Receipt Date: 20120418
  Transmission Date: 20120825
  Serious: Yes (Hospitalization)
  Sender: FDA-Public Use
  Company Number: IT-ROCHE-1058684

PATIENT
  Sex: Male

DRUGS (3)
  1. NAPROXEN SODIUM [Suspect]
     Indication: TOOTHACHE
     Route: 048
     Dates: start: 20120328, end: 20120328
  2. AMOXICILLIN TRIHYDRATE [Suspect]
     Indication: PROPHYLAXIS
     Route: 048
     Dates: start: 20120328, end: 20120328
  3. TAPAZOLE [Concomitant]
     Indication: HYPERTHYROIDISM

REACTIONS (2)
  - FAECAL INCONTINENCE [None]
  - LOSS OF CONSCIOUSNESS [None]
